FAERS Safety Report 9614567 (Version 1)
Quarter: 2013Q4

REPORT INFORMATION
  Report Type: Report from Study
  Country: LB (occurrence: LB)
  Receive Date: 20131011
  Receipt Date: 20131011
  Transmission Date: 20140711
  Serious: Yes (Death)
  Sender: FDA-Public Use
  Company Number: LB-SA-2013SA099547

PATIENT
  Age: 74 Year
  Sex: Male

DRUGS (5)
  1. LANTUS SOLOSTAR [Suspect]
     Indication: DIABETES MELLITUS
     Dosage: DOSE: LESS THAN 10 U DAILY
     Route: 058
  2. TAPAZOLE [Concomitant]
     Route: 048
  3. DIAMICRON [Concomitant]
     Indication: DIABETES MELLITUS
     Route: 048
  4. GALVUSMET [Concomitant]
     Indication: DIABETES MELLITUS
     Route: 048
  5. SOLOSTAR [Concomitant]

REACTIONS (1)
  - Myocardial infarction [Fatal]
